FAERS Safety Report 9899546 (Version 2)
Quarter: 2014Q1

REPORT INFORMATION
  Report Type: Spontaneous
  Country: NO (occurrence: NO)
  Receive Date: 20140214
  Receipt Date: 20140224
  Transmission Date: 20141002
  Serious: Yes (Other)
  Sender: FDA-Public Use
  Company Number: NO-PFIZER INC-2014044312

PATIENT
  Age: 47 Year
  Sex: Female

DRUGS (1)
  1. DICLOFENAC [Suspect]

REACTIONS (3)
  - Hypersensitivity [Recovering/Resolving]
  - Joint swelling [Recovering/Resolving]
  - Swelling face [Recovering/Resolving]
